FAERS Safety Report 12783597 (Version 1)
Quarter: 2016Q3

REPORT INFORMATION
  Report Type: Spontaneous
  Country: US (occurrence: US)
  Receive Date: 20160927
  Receipt Date: 20160927
  Transmission Date: 20161109
  Serious: Yes (Other)
  Sender: FDA-Public Use
  Company Number: US-BAXTER-2016BAX048918

PATIENT
  Age: 17 Year
  Sex: Female

DRUGS (10)
  1. CLOFARABINE [Suspect]
     Active Substance: CLOFARABINE
     Indication: B PRECURSOR TYPE ACUTE LEUKAEMIA
     Route: 065
     Dates: start: 201603
  2. ETOPOSIDE. [Suspect]
     Active Substance: ETOPOSIDE
     Route: 065
     Dates: start: 201603
  3. CYCLOPHOSPHAMIDE FOR INJECTION, USP [Suspect]
     Active Substance: CYCLOPHOSPHAMIDE
     Indication: B PRECURSOR TYPE ACUTE LEUKAEMIA
     Route: 065
     Dates: start: 201603
  4. CYTARABINE. [Suspect]
     Active Substance: CYTARABINE
     Indication: B PRECURSOR TYPE ACUTE LEUKAEMIA
     Dosage: HIGH DOSE WITH MITOXANTRONE (20 MG/M2)
     Route: 065
  5. CYTARABINE. [Suspect]
     Active Substance: CYTARABINE
     Dosage: HIGH DOSE WITH ETOPOSIDE
     Route: 065
  6. MITOXANTRONE [Suspect]
     Active Substance: MITOXANTRONE HYDROCHLORIDE
     Indication: B PRECURSOR TYPE ACUTE LEUKAEMIA
     Route: 065
  7. DAUNOMYCIN [Suspect]
     Active Substance: DAUNORUBICIN
     Indication: B PRECURSOR TYPE ACUTE LEUKAEMIA
     Dosage: VPLD INDUCTION
     Route: 065
  8. ETOPOSIDE. [Suspect]
     Active Substance: ETOPOSIDE
     Indication: B PRECURSOR TYPE ACUTE LEUKAEMIA
     Dosage: WITH HIGH DOSE CYTARABINE
     Route: 065
  9. VORICONAZOLE. [Suspect]
     Active Substance: VORICONAZOLE
     Indication: PNEUMONIA FUNGAL
     Route: 065
     Dates: end: 20160818
  10. BLINATUMOMAB [Suspect]
     Active Substance: BLINATUMOMAB
     Indication: B PRECURSOR TYPE ACUTE LEUKAEMIA
     Dosage: FIRST INFUSION, 2 CYCLES
     Route: 065
     Dates: start: 20160602

REACTIONS (4)
  - Pyelocaliectasis [Recovering/Resolving]
  - Hepatomegaly [Unknown]
  - Bone pain [Recovering/Resolving]
  - Cholelithiasis [Unknown]
